FAERS Safety Report 13228975 (Version 1)
Quarter: 2017Q1

REPORT INFORMATION
  Report Type: Spontaneous
  Country: US (occurrence: US)
  Receive Date: 20170213
  Receipt Date: 20170213
  Transmission Date: 20170428
  Serious: Yes (Other)
  Sender: FDA-Public Use
  Company Number: US-AMGEN-USASP2017022510

PATIENT
  Age: 77 Year
  Sex: Female

DRUGS (20)
  1. ENBREL [Suspect]
     Active Substance: ETANERCEPT
     Indication: PRODUCT USED FOR UNKNOWN INDICATION
     Dosage: UNK
     Route: 065
  2. ALLOPURINOL. [Concomitant]
     Active Substance: ALLOPURINOL
     Dosage: 100 MG, UNK
  3. JANTOVEN [Concomitant]
     Active Substance: WARFARIN SODIUM
     Dosage: 1 MG, UNK
  4. SOTALOL HCL [Concomitant]
     Active Substance: SOTALOL
     Dosage: 80 MG, UNK
  5. ANTI-DIARRHEAL [Concomitant]
     Active Substance: LOPERAMIDE HYDROCHLORIDE
     Dosage: 2 MG, UNK
  6. ATORVASTATIN [Concomitant]
     Active Substance: ATORVASTATIN
     Dosage: 10 MG, UNK
  7. JANTOVEN [Concomitant]
     Active Substance: WARFARIN SODIUM
     Dosage: 2.5 MG, UNK
  8. LATANOPROST. [Concomitant]
     Active Substance: LATANOPROST
     Dosage: UNK
  9. POTASSIUM CHLORIDE. [Concomitant]
     Active Substance: POTASSIUM CHLORIDE
     Dosage: 20 MEQ, UNK
  10. SSD [Concomitant]
     Active Substance: SILVER SULFADIAZINE
     Dosage: UNK
  11. HYDROCHLOROTH [Concomitant]
     Active Substance: HYDROCHLOROTHIAZIDE
     Dosage: 50 MG, UNK
  12. PREDNISONE. [Concomitant]
     Active Substance: PREDNISONE
     Dosage: 5 MG, UNK
  13. DOXYCYCLINE HYCLATE. [Concomitant]
     Active Substance: DOXYCYCLINE HYCLATE
     Dosage: 100 MG, UNK
  14. FUROSEMIDE. [Concomitant]
     Active Substance: FUROSEMIDE
     Dosage: 40 MG, UNK
  15. ASPIRIN. [Concomitant]
     Active Substance: ASPIRIN
     Dosage: 81 MG, UNK
  16. CALCIUM +D [Concomitant]
     Active Substance: CALCIUM\VITAMIN D
     Dosage: 600 UNK, UNK
  17. HYDROCODONE BITARTRATE AND ACETAMINOPHEN [Concomitant]
     Active Substance: ACETAMINOPHEN\HYDROCODONE BITARTRATE
     Dosage: 5-325 MG, UNK
  18. ZOLPIDEM [Concomitant]
     Active Substance: ZOLPIDEM\ZOLPIDEM TARTRATE
     Dosage: 10 MG, UNK
  19. LEFLUNOMIDE. [Concomitant]
     Active Substance: LEFLUNOMIDE
     Dosage: 10 MG, UNK
  20. SMZ/TMP DS [Concomitant]
     Active Substance: SULFAMETHOXAZOLE\TRIMETHOPRIM
     Dosage: 800-160

REACTIONS (3)
  - Cellulitis [Unknown]
  - Confusional state [Unknown]
  - Skin lesion [Unknown]
